FAERS Safety Report 17532560 (Version 1)
Quarter: 2020Q1

REPORT INFORMATION
  Report Type: Spontaneous
  Country: NO (occurrence: NO)
  Receive Date: 20200312
  Receipt Date: 20200312
  Transmission Date: 20200409
  Serious: Yes (Life-Threatening, Hospitalization, Other)
  Sender: FDA-Public Use
  Company Number: NO-FERRINGPH-2020FE01484

PATIENT
  Age: 61 Year
  Sex: Female
  Weight: 62 kg

DRUGS (5)
  1. PICOPREP [Suspect]
     Active Substance: ANHYDROUS CITRIC ACID\MAGNESIUM OXIDE\SODIUM PICOSULFATE
     Indication: BOWEL PREPARATION
     Dosage: 1 DAY
     Route: 065
     Dates: start: 20200123, end: 20200123
  2. VIGANTOLETTEN [Concomitant]
     Active Substance: CHOLECALCIFEROL
     Dosage: 1000 (TOTAL)
  3. VITAMIN D [VITAMIN D NOS] [Concomitant]
     Active Substance: VITAMIN D NOS
  4. COLLAFLEX [COLLAGEN] [Concomitant]
  5. MAGNE B6 [Concomitant]
     Active Substance: MAGNESIUM\PYRIDOXINE

REACTIONS (11)
  - Pain in extremity [Unknown]
  - Thoracic vertebral fracture [Unknown]
  - Amnesia [Unknown]
  - Pyrexia [Unknown]
  - Vomiting [Unknown]
  - Concussion [Unknown]
  - Lumbar vertebral fracture [Unknown]
  - Back pain [Unknown]
  - Contusion [Unknown]
  - Fall [Unknown]
  - Malaise [Unknown]

NARRATIVE: CASE EVENT DATE: 20200123
